FAERS Safety Report 19351979 (Version 3)
Quarter: 2021Q3

REPORT INFORMATION
  Report Type: Spontaneous
  Country: US (occurrence: US)
  Receive Date: 20210531
  Receipt Date: 20210812
  Transmission Date: 20211014
  Serious: No
  Sender: FDA-Public Use
  Company Number: US-PFIZER INC-2021493455

PATIENT
  Age: 42 Year
  Sex: Female
  Weight: 102.06 kg

DRUGS (1)
  1. DEPO?PROVERA [Suspect]
     Active Substance: MEDROXYPROGESTERONE ACETATE
     Indication: CONTRACEPTION
     Dosage: UNK UNK, CYCLIC (104MG/0.65ML INJECTION, EVERY 12?14 WEEKS)
     Dates: start: 202003

REACTIONS (4)
  - Needle issue [Unknown]
  - Product administration error [Unknown]
  - Drug dose omission by device [Unknown]
  - Poor quality device used [Unknown]

NARRATIVE: CASE EVENT DATE: 20210430
